FAERS Safety Report 16273662 (Version 18)
Quarter: 2020Q3

REPORT INFORMATION
  Report Type: Report from Study
  Country: None (occurrence: IL)
  Receive Date: 20190506
  Receipt Date: 20200722
  Transmission Date: 20201102
  Serious: Yes (Hospitalization, Other)
  Sender: FDA-Public Use
  Company Number: IL-ABBVIE-19K-082-2735071-00

PATIENT
  Age: 67 Year
  Sex: Male
  Weight: 73 kg

DRUGS (25)
  1. VENCLEXTA [Suspect]
     Active Substance: VENETOCLAX
     Dosage: DOSE INCREASE ACCORDING TO VENETOCLAX DOSE TITRATION SCHEME
     Route: 048
     Dates: start: 20190318, end: 20190331
  2. SOTALOL. [Concomitant]
     Active Substance: SOTALOL
     Indication: CARDIAC DISORDER
     Dates: start: 20190606
  3. BISOPROLOL [Concomitant]
     Active Substance: BISOPROLOL
     Indication: HYPERTENSION
     Dates: start: 20180123, end: 20190606
  4. VENCLEXTA [Suspect]
     Active Substance: VENETOCLAX
     Dosage: MODIFICATION TO THE DAILY DOSE DUE TO AN ADVERSE EVENT
     Route: 048
     Dates: start: 20190616, end: 20190707
  5. RITUXIMAB. [Suspect]
     Active Substance: RITUXIMAB
     Indication: CHRONIC LYMPHOCYTIC LEUKAEMIA
     Dosage: CYCLE NUMBER 1
     Route: 065
     Dates: start: 20190624, end: 20190624
  6. RITUXIMAB. [Suspect]
     Active Substance: RITUXIMAB
     Dosage: CYCLE 3
     Route: 065
     Dates: start: 20190819, end: 20190819
  7. COLCHICINE. [Concomitant]
     Active Substance: COLCHICINE
     Indication: FAMILIAL MEDITERRANEAN FEVER
     Dates: start: 20190530
  8. VENCLEXTA [Suspect]
     Active Substance: VENETOCLAX
     Dosage: DOSE INCREASE ACCORDING TO VENETOCLAX DOSE TITRATION SCHEME
     Route: 048
     Dates: start: 20190401, end: 20190407
  9. SOTALOL. [Concomitant]
     Active Substance: SOTALOL
     Indication: HYPERTENSION
  10. CITALOPRAM [Concomitant]
     Active Substance: CITALOPRAM HYDROBROMIDE
     Indication: PROPHYLAXIS
     Dates: start: 20161117
  11. CILAZAPRIL [Concomitant]
     Active Substance: CILAZAPRIL ANHYDROUS
     Indication: HYPERLIPIDAEMIA
     Dates: start: 20050515
  12. VENCLEXTA [Suspect]
     Active Substance: VENETOCLAX
     Dosage: MODIFICATION TO THE DAILY DOSE.?OTHER?BACK TO DAILY DOSE
     Route: 048
     Dates: start: 20190708, end: 20190915
  13. RITUXIMAB. [Suspect]
     Active Substance: RITUXIMAB
     Dosage: CYCLE 6
     Route: 065
     Dates: start: 20191111, end: 20191111
  14. VENCLEXTA [Suspect]
     Active Substance: VENETOCLAX
     Indication: CHRONIC LYMPHOCYTIC LEUKAEMIA
     Dosage: DOSE INCREASE ACCORDING TO VENETOCLAX DOSE TITRATION SCHEME
     Route: 048
     Dates: start: 20190304, end: 20190310
  15. VENCLEXTA [Suspect]
     Active Substance: VENETOCLAX
     Dosage: DOSE INCREASE ACCORDING TO VENETOCLAX DOSE TITRATION SCHEME
     Route: 048
     Dates: start: 20190311, end: 20190317
  16. NEUPOGEN [Concomitant]
     Active Substance: FILGRASTIM
     Indication: NEUTROPENIA
     Dates: start: 20190729
  17. VENCLEXTA [Suspect]
     Active Substance: VENETOCLAX
     Dosage: INTERRUPTION DUE TO AN ADVERSE EVENT
     Route: 048
     Dates: start: 20190422, end: 20190605
  18. VENCLEXTA [Suspect]
     Active Substance: VENETOCLAX
     Dosage: DOSE INCREASED
     Route: 048
     Dates: start: 20190916, end: 20200505
  19. VENCLEXTA [Suspect]
     Active Substance: VENETOCLAX
     Dosage: DOSE DECREASED
     Route: 048
     Dates: start: 20200506
  20. RITUXIMAB. [Suspect]
     Active Substance: RITUXIMAB
     Dosage: CYCLE 5
     Route: 065
     Dates: start: 20191015, end: 20191015
  21. VENCLEXTA [Suspect]
     Active Substance: VENETOCLAX
     Dosage: INTERRUPTION DUE TO AN ADVERSE EVENT
     Route: 048
     Dates: start: 20190408, end: 20190421
  22. VENCLEXTA [Suspect]
     Active Substance: VENETOCLAX
     Dosage: MODIFICATION TO THE DAILY DOSE DUE TO AN ADVERSE EVENT
     Route: 048
     Dates: start: 20190606, end: 20190615
  23. RITUXIMAB. [Suspect]
     Active Substance: RITUXIMAB
     Dosage: CYCLE 2
     Route: 065
     Dates: start: 20190722, end: 20190722
  24. RITUXIMAB. [Suspect]
     Active Substance: RITUXIMAB
     Dosage: CYCLE 4
     Route: 065
     Dates: start: 20190916, end: 20190916
  25. ISOKET [Concomitant]
     Active Substance: ISOSORBIDE DINITRATE
     Indication: CARDIAC FIBRILLATION
     Dosage: SPRAY
     Dates: start: 2017

REACTIONS (20)
  - Gout [Recovered/Resolved]
  - Angiopathy [Recovered/Resolved]
  - Pyrexia [Recovered/Resolved]
  - Viral infection [Recovered/Resolved]
  - Haematoma [Recovered/Resolved]
  - Carotid endarterectomy [Recovered/Resolved]
  - Pollakiuria [Recovered/Resolved]
  - Leukopenia [Recovered/Resolved]
  - Haemoptysis [Recovered/Resolved]
  - Asthenia [Recovered/Resolved]
  - Weight decreased [Unknown]
  - Diarrhoea [Recovered/Resolved]
  - Cardiac fibrillation [Recovered/Resolved]
  - Tumour lysis syndrome [Unknown]
  - Vomiting [Recovered/Resolved]
  - Neutropenia [Recovered/Resolved]
  - Neutropenia [Recovered/Resolved]
  - Neutropenia [Not Recovered/Not Resolved]
  - Abdominal pain [Unknown]
  - Diarrhoea [Not Recovered/Not Resolved]

NARRATIVE: CASE EVENT DATE: 2019
